FAERS Safety Report 8417429-7 (Version None)
Quarter: 2012Q2

REPORT INFORMATION
  Report Type: 
  Country: None (occurrence: None)
  Receive Date: 20120606
  Receipt Date: 20120601
  Transmission Date: 20120825
  Serious: Yes (Death, Hospitalization)
  Sender: FDA-Public Use
  Company Number: US-CELGENEUS-163-21880-09050730

PATIENT
  Sex: Female
  Weight: 76.13 kg

DRUGS (11)
  1. PROPOFOL [Concomitant]
     Route: 065
  2. VITAMIN D [Concomitant]
     Route: 065
  3. COUMADIN [Concomitant]
     Route: 065
  4. BORTEZOMIB [Suspect]
     Dosage: 1.8 MILLIGRAM
     Route: 041
     Dates: start: 20090316, end: 20090425
  5. CLARITIN-D [Concomitant]
     Route: 065
  6. REVLIMID [Suspect]
     Dosage: 5 MILLIGRAM
     Route: 048
     Dates: start: 20090316, end: 20090427
  7. PREDNISONE TAB [Concomitant]
     Route: 065
  8. ZITHROMAX [Concomitant]
     Route: 065
  9. CALCIUM [Concomitant]
     Route: 065
  10. LASIX [Concomitant]
     Route: 065
  11. METOPROLOL TARTRATE [Concomitant]
     Route: 065

REACTIONS (5)
  - COUGH [None]
  - DYSPNOEA [None]
  - RESPIRATORY FAILURE [None]
  - PULMONARY OEDEMA [None]
  - VENTRICULAR HYPOKINESIA [None]
